FAERS Safety Report 15760594 (Version 1)
Quarter: 2018Q4

REPORT INFORMATION
  Report Type: Spontaneous
  Country: US (occurrence: US)
  Receive Date: 20181218
  Receipt Date: 20181218
  Transmission Date: 20190205
  Serious: No
  Sender: FDA-Public Use
  Company Number: None

PATIENT

DRUGS (2)
  1. ESOMEPRA MAG CAP 20MG DR [Suspect]
     Active Substance: ESOMEPRAZOLE MAGNESIUM
  2. ESOMEPRA MAG CAP 40MG DR [Suspect]
     Active Substance: ESOMEPRAZOLE MAGNESIUM

REACTIONS (3)
  - Product dispensing error [None]
  - Transcription medication error [None]
  - Intercepted product dispensing error [None]
